FAERS Safety Report 9157757 (Version 2)
Quarter: 2013Q2

REPORT INFORMATION
  Report Type: Spontaneous
  Country: US (occurrence: US)
  Receive Date: 20130312
  Receipt Date: 20130513
  Transmission Date: 20140414
  Serious: No
  Sender: FDA-Public Use
  Company Number: US-009507513-1303USA005237

PATIENT
  Age: 52 Year
  Sex: Male
  Weight: 77.55 kg

DRUGS (7)
  1. PEG-INTRON [Suspect]
     Dosage: 120 MICROGRAM/0.5MILLILITER, QW FOR 6 MONTHS
     Route: 058
  2. VICTRELIS [Suspect]
     Dosage: 800 MG, TID
     Route: 048
  3. RIBAPAK [Suspect]
     Dosage: 1000/DAY
  4. AMLODIPINE [Concomitant]
     Dosage: 10 MG, UNK
  5. IBUPROFEN [Concomitant]
     Dosage: 200 MG, UNK
  6. GARLIC [Concomitant]
     Dosage: 1500 CAP
  7. IRON (UNSPECIFIED) [Concomitant]

REACTIONS (13)
  - Urine output increased [Unknown]
  - Fatigue [Unknown]
  - Alopecia [Unknown]
  - Decreased appetite [Unknown]
  - Nausea [Unknown]
  - Dry skin [Unknown]
  - Pruritus [Unknown]
  - Pain [Unknown]
  - Asthenia [Unknown]
  - Fatigue [Unknown]
  - Diarrhoea [Unknown]
  - Irritability [Unknown]
  - Dizziness [Unknown]
